FAERS Safety Report 7522911-0 (Version None)
Quarter: 2011Q2

REPORT INFORMATION
  Report Type: 
  Country: None (occurrence: None)
  Receive Date: 20110603
  Receipt Date: 20110523
  Transmission Date: 20111010
  Serious: Yes (Other)
  Sender: FDA-Public Use
  Company Number: PHHY2011AR34581

PATIENT
  Sex: Female

DRUGS (1)
  1. FEMARA [Suspect]
     Indication: BREAST CANCER
     Dosage: HALF THE DOSE

REACTIONS (4)
  - TOXICITY TO VARIOUS AGENTS [None]
  - LYMPHOCYTE COUNT ABNORMAL [None]
  - DEPRESSION [None]
  - SOCIAL PROBLEM [None]
